FAERS Safety Report 18037826 (Version 2)
Quarter: 2021Q2

REPORT INFORMATION
  Report Type: Report from Study
  Country: None (occurrence: IL)
  Receive Date: 20200717
  Receipt Date: 20210520
  Transmission Date: 20210717
  Serious: Yes (Death)
  Sender: FDA-Public Use
  Company Number: IL-ABBVIE-20K-082-3486457-00

PATIENT
  Age: 77 Year
  Sex: Female
  Weight: 58 kg

DRUGS (5)
  1. VENCLEXTA [Suspect]
     Active Substance: VENETOCLAX
     Indication: ACUTE MYELOID LEUKAEMIA
     Dosage: RAMP UP
     Route: 048
     Dates: start: 20200706, end: 20200706
  2. VENCLEXTA [Suspect]
     Active Substance: VENETOCLAX
     Dosage: RAMP UP
     Route: 048
     Dates: start: 20200708, end: 20200710
  3. VENCLEXTA [Suspect]
     Active Substance: VENETOCLAX
     Dosage: RAMP UP
     Route: 048
     Dates: start: 20200707, end: 20200707
  4. VENCLEXTA [Suspect]
     Active Substance: VENETOCLAX
     Route: 048
     Dates: start: 20200711, end: 20200711
  5. AZACITIDINE. [Suspect]
     Active Substance: AZACITIDINE
     Indication: ACUTE MYELOID LEUKAEMIA
     Dosage: CYCLE 1
     Route: 058
     Dates: start: 20200707, end: 20200711

REACTIONS (2)
  - Pneumonia [Fatal]
  - Pyrexia [Recovered/Resolved]

NARRATIVE: CASE EVENT DATE: 20200706
